FAERS Safety Report 4725666-8 (Version None)
Quarter: 2005Q3

REPORT INFORMATION
  Report Type: 
  Country: None (occurrence: None)
  Receive Date: 20050727
  Receipt Date: 20050718
  Transmission Date: 20060218
  Serious: Yes (Other)
  Sender: FDA-Public Use
  Company Number: PHBS2005SG10252

PATIENT
  Age: 76 Year
  Sex: Male

DRUGS (4)
  1. ZOMETA [Suspect]
     Indication: METASTASES TO BONE
     Route: 042
     Dates: end: 20040708
  2. AMOXICILLIN [Concomitant]
     Dosage: 500 MG, TID
     Route: 048
     Dates: start: 20030527, end: 20040531
  3. METRONIDAZOLE [Concomitant]
     Dosage: 400 MG, TID
     Route: 048
     Dates: start: 20030527, end: 20040531
  4. TRAMADOL HCL [Concomitant]
     Dosage: 50 MG, TID
     Route: 048
     Dates: start: 20030527, end: 20040531

REACTIONS (2)
  - ASEPTIC NECROSIS BONE [None]
  - BONE DISORDER [None]
